FAERS Safety Report 6767190-7 (Version None)
Quarter: 2010Q2

REPORT INFORMATION
  Report Type: 
  Country: None (occurrence: None)
  Receive Date: 20100614
  Receipt Date: 20100607
  Transmission Date: 20101027
  Serious: Yes (Other)
  Sender: FDA-Public Use
  Company Number: US-JNJFOC-20100509820

PATIENT
  Sex: Female

DRUGS (4)
  1. MONISTAT 1 COMBINATION PACK DAY OR NIGHT [Suspect]
     Route: 067
  2. MONISTAT 1 COMBINATION PACK DAY OR NIGHT [Suspect]
     Indication: DRUG USE FOR UNKNOWN INDICATION
     Route: 067
  3. MONISTAT 1 COMBINATION PACK DAY OR NIGHT [Suspect]
     Route: 061
  4. MONISTAT 1 COMBINATION PACK DAY OR NIGHT [Suspect]
     Dosage: 100MG TUBE 2% STRENGTH EXTERNAL CREAM
     Route: 061

REACTIONS (5)
  - CAUSTIC INJURY [None]
  - EXPIRED DRUG ADMINISTERED [None]
  - PRODUCT LABEL ISSUE [None]
  - THERAPEUTIC RESPONSE INCREASED [None]
  - VULVOVAGINAL PAIN [None]
